FAERS Safety Report 6935689-6 (Version None)
Quarter: 2010Q3

REPORT INFORMATION
  Report Type: 
  Country: None (occurrence: None)
  Receive Date: 20100823
  Receipt Date: 20100813
  Transmission Date: 20110219
  Serious: Yes (Other)
  Sender: FDA-Public Use
  Company Number: US-JNJFOC-20100805766

PATIENT
  Sex: Female
  Weight: 94.35 kg

DRUGS (4)
  1. TOPAMAX [Suspect]
     Indication: IMPULSE-CONTROL DISORDER
     Route: 048
  2. HALDOL [Suspect]
     Indication: BIPOLAR DISORDER
     Route: 030
  3. LITHIUM CARBONATE [Concomitant]
     Indication: BIPOLAR DISORDER
     Route: 048
  4. SEROQUEL [Concomitant]
     Indication: SLEEP DISORDER
     Route: 048

REACTIONS (2)
  - BLOOD CHLORIDE INCREASED [None]
  - CARBON DIOXIDE ABNORMAL [None]
